FAERS Safety Report 6314493-6 (Version None)
Quarter: 2009Q3

REPORT INFORMATION
  Report Type: 
  Country: None (occurrence: None)
  Receive Date: 20090817
  Receipt Date: 20090817
  Transmission Date: 20100115
  Serious: Yes (Other)
  Sender: FDA-Public Use
  Company Number: None

PATIENT
  Age: 44 Year
  Sex: Female
  Weight: 106.5953 kg

DRUGS (3)
  1. REBIF [Suspect]
     Indication: MULTIPLE SCLEROSIS
     Dosage: 44 MCG 3 TIMES A WEEK SQ
     Route: 058
  2. ANXIETY PILL DAILY [Concomitant]
  3. BABY ASPIRIN DAILY [Concomitant]

REACTIONS (1)
  - ALOPECIA [None]
